FAERS Safety Report 17375276 (Version 1)
Quarter: 2020Q1

REPORT INFORMATION
  Report Type: Spontaneous
  Country: US (occurrence: US)
  Receive Date: 20200204
  Receipt Date: 20200204
  Transmission Date: 20200409
  Serious: No
  Sender: FDA-Public Use
  Company Number: None

PATIENT
  Age: 73 Year

DRUGS (2)
  1. CHEMOLOCK [Suspect]
     Active Substance: DEVICE
  2. CARBOPLATIN. [Suspect]
     Active Substance: CARBOPLATIN

REACTIONS (2)
  - Accidental exposure to product [None]
  - Device issue [None]

NARRATIVE: CASE EVENT DATE: 20200203
